FAERS Safety Report 9680948 (Version 3)
Quarter: 2013Q4

REPORT INFORMATION
  Report Type: Spontaneous
  Country: IT (occurrence: IT)
  Receive Date: 20131111
  Receipt Date: 20131223
  Transmission Date: 20140711
  Serious: Yes (Other)
  Sender: FDA-Public Use
  Company Number: IT-009507513-1311ITA002950

PATIENT
  Age: 64 Year
  Sex: Female

DRUGS (2)
  1. LORTAAN 50 MG COMPRESSE RIVESTITE CON FILM [Suspect]
     Indication: HYPERTENSION
     Dosage: UNK
     Route: 048
     Dates: start: 20120902, end: 20130901
  2. CARDURA [Suspect]
     Indication: HYPERTENSION
     Dosage: UNK
     Route: 048
     Dates: start: 20120902, end: 20130901

REACTIONS (1)
  - Syncope [Recovering/Resolving]
